FAERS Safety Report 17155917 (Version 2)
Quarter: 2019Q4

REPORT INFORMATION
  Report Type: Report from Study
  Country: US (occurrence: US)
  Receive Date: 20191216
  Receipt Date: 20191217
  Transmission Date: 20200122
  Serious: Yes (Other)
  Sender: FDA-Public Use
  Company Number: US-TEVA-2019-US-1152155

PATIENT
  Sex: Female

DRUGS (3)
  1. CLARAVIS [Suspect]
     Active Substance: ISOTRETINOIN
     Route: 065
  2. CLARAVIS [Suspect]
     Active Substance: ISOTRETINOIN
     Dosage: 40 MILLIGRAM DAILY;
     Route: 065
     Dates: start: 20191025, end: 20191124
  3. TRI-SPRINTEC [Concomitant]
     Active Substance: ETHINYL ESTRADIOL\NORGESTIMATE
     Indication: CONTRACEPTION

REACTIONS (1)
  - Unintended pregnancy [Unknown]
